FAERS Safety Report 19468511 (Version 1)
Quarter: 2021Q2

REPORT INFORMATION
  Report Type: Spontaneous
  Country: LU (occurrence: LU)
  Receive Date: 20210628
  Receipt Date: 20210628
  Transmission Date: 20210717
  Serious: Yes (Other)
  Sender: FDA-Public Use
  Company Number: LU-ACCORD-229648

PATIENT
  Age: 55 Year
  Sex: Male
  Weight: 58 kg

DRUGS (5)
  1. FOLINIC ACID [Suspect]
     Active Substance: LEUCOVORIN
     Indication: PRODUCT USED FOR UNKNOWN INDICATION
     Dosage: START AT H0+60 MIN
     Route: 042
     Dates: start: 20210503, end: 20210503
  2. FORTECORTIN [Concomitant]
     Active Substance: DEXAMETHASONE
     Indication: CHEMOTHERAPY SIDE EFFECT PROPHYLAXIS
     Route: 042
     Dates: start: 20210503, end: 20210503
  3. DOCETAXEL ACCORD [Suspect]
     Active Substance: DOCETAXEL
     Indication: GASTRIC CANCER
     Dosage: START AT H0
     Route: 042
     Dates: start: 20210503, end: 20210503
  4. ELOXATIN [Suspect]
     Active Substance: OXALIPLATIN
     Indication: GASTRIC CANCER
     Dosage: START AT H0+60 MIN
     Route: 042
     Dates: start: 20210503, end: 20210503
  5. ONDANSETRON [Concomitant]
     Active Substance: ONDANSETRON
     Indication: CHEMOTHERAPY SIDE EFFECT PROPHYLAXIS
     Route: 042
     Dates: start: 20210503, end: 20210503

REACTIONS (5)
  - Chest discomfort [Recovered/Resolved]
  - Eye pain [Recovered/Resolved]
  - Infusion related reaction [Recovered/Resolved]
  - Hot flush [Recovered/Resolved]
  - Heart rate increased [Recovered/Resolved]

NARRATIVE: CASE EVENT DATE: 20210503
